FAERS Safety Report 18154697 (Version 3)
Quarter: 2020Q4

REPORT INFORMATION
  Report Type: Spontaneous
  Country: PL (occurrence: PL)
  Receive Date: 20200817
  Receipt Date: 20201118
  Transmission Date: 20210113
  Serious: Yes (Hospitalization, Other)
  Sender: FDA-Public Use
  Company Number: PL-AUROBINDO-AUR-APL-2020-038296

PATIENT
  Age: 59 Year
  Sex: Female

DRUGS (28)
  1. MORPHINE [Suspect]
     Active Substance: MORPHINE
     Indication: CANCER PAIN
     Dosage: 60 MILLIGRAM, ONCE A DAY (60 MG, PER DAY, IMMEDIATE RELEASE)
     Route: 065
     Dates: start: 201704
  2. DULOXETINE. [Suspect]
     Active Substance: DULOXETINE
     Indication: PAIN
     Dosage: 60 MILLIGRAM, ONCE A DAY
     Route: 065
     Dates: start: 201710, end: 201806
  3. NALOXONE;OXYCODONE [Suspect]
     Active Substance: NALOXONE HYDROCHLORIDE\OXYCODONE HYDROCHLORIDE
     Indication: CONSTIPATION
     Dosage: 1 DOSAGE FORM, ONCE A DAY (40 MG/20 MG DAILY )
     Route: 065
  4. NALOXONE;OXYCODONE [Suspect]
     Active Substance: NALOXONE HYDROCHLORIDE\OXYCODONE HYDROCHLORIDE
     Indication: CANCER PAIN
     Dosage: UNK UNK, ONCE A DAY
     Route: 065
     Dates: start: 201710, end: 201806
  5. LACTULOSE. [Concomitant]
     Active Substance: LACTULOSE
     Indication: PRODUCT USED FOR UNKNOWN INDICATION
     Dosage: UNK
     Route: 065
     Dates: start: 201704
  6. MORPHINE [Suspect]
     Active Substance: MORPHINE
     Indication: PAIN
     Dosage: 30 MILLIGRAM, ONCE A DAY
     Route: 065
  7. ZOLEDRONIC ACID [Concomitant]
     Active Substance: ZOLEDRONIC ACID
     Indication: CANCER PAIN
     Dosage: 4 MILLIGRAM,EVERY 28 DAYS
     Route: 042
     Dates: start: 201704
  8. PREGABALIN. [Suspect]
     Active Substance: PREGABALIN
     Indication: CANCER PAIN
     Dosage: 75 MILLIGRAM, ONCE A DAY
     Route: 065
     Dates: start: 201704
  9. METHADONE [Concomitant]
     Active Substance: METHADONE HYDROCHLORIDE
     Indication: PRODUCT USED FOR UNKNOWN INDICATION
     Dosage: 6 MILLIGRAM, ONCE A DAY,2 MG, TID (GRADUALLY INCREASED OVER 2 WEEKS)
     Route: 065
  10. OXYCODONE [Suspect]
     Active Substance: OXYCODONE
     Indication: PAIN
     Dosage: 20 MILLIGRAM, ONCE A DAY (20 MG, PER DAY, PROLONGED RELEASE)
     Route: 065
     Dates: start: 201704
  11. OXYCODONE [Suspect]
     Active Substance: OXYCODONE
     Dosage: 20 MG, PER DAY
     Route: 065
     Dates: start: 201708
  12. OXYCODONE [Suspect]
     Active Substance: OXYCODONE
     Dosage: 30 MILLIGRAM, ONCE A DAY
     Route: 065
     Dates: start: 201710, end: 201806
  13. DEXAMETHASONE. [Suspect]
     Active Substance: DEXAMETHASONE
     Indication: PAIN
     Dosage: UNK
     Route: 065
     Dates: start: 201710, end: 201806
  14. NALOXONE;OXYCODONE [Suspect]
     Active Substance: NALOXONE HYDROCHLORIDE\OXYCODONE HYDROCHLORIDE
     Indication: PAIN
     Dosage: 1 DOSAGE FORM, ONCE A DAY (60 MG/30 MG DAILY )
     Route: 065
     Dates: start: 201708
  15. CALCIUM +D3 [Concomitant]
     Active Substance: CALCIUM\CHOLECALCIFEROL
     Indication: PRODUCT USED FOR UNKNOWN INDICATION
     Dosage: UNK
     Route: 065
  16. PARACETAMOL [Suspect]
     Active Substance: ACETAMINOPHEN
     Dosage: PERIODICALLY
     Route: 065
     Dates: start: 201710, end: 201806
  17. METHADONE [Concomitant]
     Active Substance: METHADONE HYDROCHLORIDE
     Dosage: 30 MILLIGRAM, ONCE A DAY (10 MG, TID )
     Route: 065
  18. PREGABALIN. [Suspect]
     Active Substance: PREGABALIN
     Indication: PAIN
     Dosage: 300 MILLIGRAM, DAILY
     Route: 065
  19. FENTANYL. [Suspect]
     Active Substance: FENTANYL
     Indication: PAIN
     Dosage: 100 MICROGRAM/HOUR
     Route: 062
     Dates: start: 201708
  20. FENTANYL. [Suspect]
     Active Substance: FENTANYL
     Indication: CANCER PAIN
     Dosage: 150 MICROGRAM/HOUR
     Route: 062
     Dates: start: 201710, end: 201806
  21. PARACETAMOL [Suspect]
     Active Substance: ACETAMINOPHEN
     Indication: PAIN
     Dosage: 3 GRAM, ONCE A DAY (3 G, PER DAY)
     Route: 065
     Dates: start: 201704
  22. PREGABALIN. [Suspect]
     Active Substance: PREGABALIN
     Dosage: 150 MILLIGRAM, ONCE A DAY
     Route: 065
     Dates: start: 201708
  23. PREGABALIN. [Suspect]
     Active Substance: PREGABALIN
     Dosage: 450 MILLIGRAM, ONCE A DAY
     Route: 065
     Dates: start: 201710, end: 201806
  24. MORPHINE [Suspect]
     Active Substance: MORPHINE
     Dosage: 36 MG, PER DAY(GRADUALLY INCREASED)
     Route: 058
     Dates: start: 201710, end: 201806
  25. BUPRENORPHINE. [Suspect]
     Active Substance: BUPRENORPHINE
     Indication: PAIN
     Dosage: 52.5 MICROGRAM/HOUR
     Route: 062
     Dates: start: 201704
  26. KETOPROFEN. [Suspect]
     Active Substance: KETOPROFEN
     Indication: PAIN
     Dosage: 100 MILLIGRAM, ONCE A DAY
     Route: 065
     Dates: start: 201704
  27. METAMIZOLE [Suspect]
     Active Substance: METAMIZOLE
     Indication: PAIN
     Dosage: UNK, PERIODICALLY
     Route: 065
     Dates: start: 201710, end: 201806
  28. ZOLEDRONIC ACID [Concomitant]
     Active Substance: ZOLEDRONIC ACID
     Dosage: 4 MILLIGRAM,EVERY 28 DAYS
     Route: 042
     Dates: start: 201708

REACTIONS (7)
  - Decreased appetite [Unknown]
  - Affective disorder [Unknown]
  - Depressed mood [Unknown]
  - Off label use [Recovered/Resolved]
  - Drug ineffective [Recovered/Resolved]
  - Therapeutic product effect incomplete [Recovering/Resolving]
  - Constipation [Unknown]
